FAERS Safety Report 5674192-0 (Version None)
Quarter: 2008Q1

REPORT INFORMATION
  Report Type: 
  Country: None (occurrence: None)
  Receive Date: 20080320
  Receipt Date: 20080311
  Transmission Date: 20080703
  Serious: Yes (Other)
  Sender: FDA-Public Use
  Company Number: PHBS2007JP21196

PATIENT
  Age: 55 Year
  Sex: Female
  Weight: 45 kg

DRUGS (8)
  1. TEGRETOL [Suspect]
     Indication: CANCER PAIN
     Dosage: 200 MG, BID
     Route: 048
     Dates: start: 20070910, end: 20071128
  2. TEGRETOL [Suspect]
     Dosage: 400 MG, BID
     Route: 048
     Dates: start: 20071129, end: 20071129
  3. TEGRETOL [Suspect]
     Dosage: 200 MG, TID
     Route: 048
     Dates: start: 20071201, end: 20071215
  4. TEGRETOL [Suspect]
     Dosage: 200 MG, BID
     Route: 048
     Dates: start: 20071216
  5. GABAPENTIN [Suspect]
     Indication: NEURALGIA
     Dosage: 800 MG, TID
     Route: 048
     Dates: start: 20070901
  6. OXYCONTIN [Suspect]
     Indication: NEURALGIA
     Dosage: 25 MG, BID
     Route: 048
     Dates: start: 20070915
  7. TS 1 [Concomitant]
     Route: 065
  8. GEMZAR [Suspect]
     Route: 041

REACTIONS (9)
  - CONVULSION [None]
  - DIZZINESS [None]
  - DRUG ERUPTION [None]
  - DRUG INTERACTION [None]
  - MUSCLE SPASMS [None]
  - MUSCLE TWITCHING [None]
  - TREMOR [None]
  - VERTIGO [None]
  - VOMITING [None]
